FAERS Safety Report 14617355 (Version 1)
Quarter: 2018Q1

REPORT INFORMATION
  Report Type: Spontaneous
  Country: US (occurrence: US)
  Receive Date: 20180309
  Receipt Date: 20180309
  Transmission Date: 20180509
  Serious: No
  Sender: FDA-Public Use
  Company Number: US-JNJFOC-20180226567

PATIENT
  Age: 15 Year
  Sex: Female

DRUGS (2)
  1. TYLENOL EXTRA STRENGTH [Suspect]
     Active Substance: ACETAMINOPHEN
     Indication: INFLUENZA
     Dosage: A DOSE (UNSPECIFIED NUMBER OF GELCAPS) AT 12:30 AND THEN ANOTHER DOSE AT 16:00
     Route: 048
     Dates: start: 20180216
  2. TYLENOL EXTRA STRENGTH [Suspect]
     Active Substance: ACETAMINOPHEN
     Indication: INFLUENZA
     Dosage: A DOSE (UNSPECIFIED NUMBER OF GELCAPS)
     Route: 048
     Dates: start: 20180215

REACTIONS (3)
  - Somnolence [Not Recovered/Not Resolved]
  - Product use in unapproved indication [Unknown]
  - Product label issue [Unknown]

NARRATIVE: CASE EVENT DATE: 20180215
